FAERS Safety Report 4758466-3 (Version None)
Quarter: 2005Q3

REPORT INFORMATION
  Report Type: 
  Country: None (occurrence: None)
  Receive Date: 20050901
  Receipt Date: 20050825
  Transmission Date: 20060218
  Serious: Yes (Hospitalization)
  Sender: FDA-Public Use
  Company Number: FI-JNJFOC-20050806053

PATIENT
  Age: 64 Year
  Sex: Male

DRUGS (6)
  1. REMICADE [Suspect]
     Indication: PSORIASIS
     Route: 042
  2. METHOTREXATE [Concomitant]
     Indication: PSORIASIS
     Route: 048
  3. KALCIPOS-D [Concomitant]
     Route: 065
  4. KALCIPOS-D [Concomitant]
     Route: 065
  5. FOLVITE [Concomitant]
  6. OMEPRAZOLE [Concomitant]

REACTIONS (1)
  - POLYMYALGIA RHEUMATICA [None]
